FAERS Safety Report 5826670-9 (Version None)
Quarter: 2008Q3

REPORT INFORMATION
  Report Type: 
  Country: None (occurrence: None)
  Receive Date: 20080730
  Receipt Date: 20080626
  Transmission Date: 20090109
  Serious: No
  Sender: FDA-Public Use
  Company Number: US-BAYER-200812616BCC

PATIENT
  Age: 21 Year
  Sex: Female
  Weight: 91 kg

DRUGS (4)
  1. ALEVE D SINUS + COLD CAPLETS [Suspect]
     Indication: NASOPHARYNGITIS
     Route: 048
     Dates: start: 20080625, end: 20080625
  2. ALEVE D SINUS + COLD CAPLETS [Suspect]
     Route: 048
     Dates: start: 20080626
  3. DEPRESSION MEDICATION [Concomitant]
  4. TRAZODONE HCL [Concomitant]

REACTIONS (1)
  - HYPERHIDROSIS [None]
